FAERS Safety Report 6262262-8 (Version None)
Quarter: 2009Q3

REPORT INFORMATION
  Report Type: 
  Country: None (occurrence: None)
  Receive Date: 20090709
  Receipt Date: 20090701
  Transmission Date: 20100115
  Serious: Yes (Other)
  Sender: FDA-Public Use
  Company Number: US-B.I. PHARMACEUTICALS,INC./RIDGEFIELD-2009-BP-07890BP

PATIENT
  Sex: Female

DRUGS (2)
  1. DULCOLAX [Suspect]
     Indication: BOWEL PREPARATION
     Route: 048
  2. MIRALAX [Suspect]
     Indication: BOWEL PREPARATION
     Route: 048

REACTIONS (5)
  - ANAPHYLACTIC SHOCK [None]
  - BLOOD PRESSURE DECREASED [None]
  - OEDEMA MOUTH [None]
  - PALATAL OEDEMA [None]
  - PHARYNGEAL OEDEMA [None]
